FAERS Safety Report 4482123-4 (Version None)
Quarter: 2004Q4

REPORT INFORMATION
  Report Type: 
  Country: None (occurrence: None)
  Receive Date: 20041020
  Receipt Date: 20041001
  Transmission Date: 20050328
  Serious: Yes (Other)
  Sender: FDA-Public Use
  Company Number: USA041079977

PATIENT
  Age: 74 Year
  Sex: Female

DRUGS (1)
  1. EVISTA [Suspect]
     Route: 048

REACTIONS (4)
  - FALL [None]
  - FOOT CRUSHING [None]
  - GAIT DISTURBANCE [None]
  - LOSS OF CONSCIOUSNESS [None]
